FAERS Safety Report 8945378 (Version 1)
Quarter: 2012Q4

REPORT INFORMATION
  Report Type: 
  Country: US (occurrence: US)
  Receive Date: 20121205
  Receipt Date: 20121205
  Transmission Date: 20130627
  Serious: No
  Sender: FDA-Public Use
  Company Number: US-009507513-1212USA000861

PATIENT
  Sex: Male

DRUGS (3)
  1. PEGINTRON [Suspect]
     Indication: HEPATITIS C
     Dosage: UNK
     Route: 058
     Dates: start: 20121031
  2. RIBAVIRIN [Suspect]
     Indication: HEPATITIS C
     Dosage: UNK
     Route: 048
     Dates: start: 20121031
  3. VICTRELIS [Suspect]
     Indication: HEPATITIS C
     Dosage: UNK
     Dates: start: 20121128

REACTIONS (13)
  - Gastrointestinal disorder [Unknown]
  - Dyspepsia [Unknown]
  - Diarrhoea [Unknown]
  - Pyrexia [Unknown]
  - Pruritus [Unknown]
  - Rash [Unknown]
  - Insomnia [Unknown]
  - Disturbance in attention [Unknown]
  - Depression [Unknown]
  - Headache [Unknown]
  - Malaise [Unknown]
  - Irritability [Unknown]
  - Fatigue [Unknown]
